FAERS Safety Report 23535265 (Version 1)
Quarter: 2024Q1

REPORT INFORMATION
  Report Type: Report from Study
  Country: US (occurrence: US)
  Receive Date: 20240218
  Receipt Date: 20240218
  Transmission Date: 20240409
  Serious: Yes (Death, Other)
  Sender: FDA-Public Use
  Company Number: US-AUROBINDO-AUR-APL-2024-006512

PATIENT
  Age: 83 Year
  Sex: Male

DRUGS (1)
  1. LENALIDOMIDE [Suspect]
     Active Substance: LENALIDOMIDE
     Indication: Plasma cell myeloma
     Dosage: UNK
     Route: 065

REACTIONS (1)
  - B-cell type acute leukaemia [Fatal]
